FAERS Safety Report 9747606 (Version 1)
Quarter: 2013Q4

REPORT INFORMATION
  Report Type: Spontaneous
  Country: US (occurrence: None)
  Receive Date: 20131211
  Receipt Date: 20131211
  Transmission Date: 20140711
  Serious: No
  Sender: FDA-Public Use
  Company Number: None

PATIENT
  Age: 29 Year
  Sex: Female
  Weight: 85.28 kg

DRUGS (1)
  1. HUMIRA [Suspect]
     Indication: PSORIATIC ARTHROPATHY
     Dosage: 1 PEN, EVERY 2 WEEKS, GIVEN INTO/ UNDER THE SKIN
     Dates: start: 20131108, end: 20131210

REACTIONS (1)
  - Diarrhoea [None]
